FAERS Safety Report 7058489-8 (Version None)
Quarter: 2010Q4

REPORT INFORMATION
  Report Type: 
  Country: None (occurrence: None)
  Receive Date: 20101022
  Receipt Date: 20101018
  Transmission Date: 20110411
  Serious: Yes (Hospitalization)
  Sender: FDA-Public Use
  Company Number: CHPA2010US15207

PATIENT
  Age: 65 Year
  Sex: Female
  Weight: 61.224 kg

DRUGS (1)
  1. SLOW FE BROWN (NCH) [Suspect]
     Indication: ANAEMIA
     Dosage: 142 MG, QD
     Route: 048
     Dates: start: 20100910

REACTIONS (6)
  - ABDOMINAL PAIN UPPER [None]
  - ABNORMAL FAECES [None]
  - ASTHENIA [None]
  - DIARRHOEA [None]
  - FATIGUE [None]
  - MALAISE [None]
